FAERS Safety Report 6417202-5 (Version None)
Quarter: 2009Q4

REPORT INFORMATION
  Report Type: 
  Country: None (occurrence: None)
  Receive Date: 20091028
  Receipt Date: 20091026
  Transmission Date: 20100525
  Serious: Yes (Hospitalization)
  Sender: FDA-Public Use
  Company Number: ES-B.I. PHARMACEUTICALS,INC./RIDGEFIELD-2009-ES-00187ES

PATIENT
  Age: 92 Year
  Sex: Male

DRUGS (3)
  1. MICARDIS [Suspect]
     Indication: HYPERTENSION
     Dosage: 80 MG
     Route: 048
     Dates: start: 20080101, end: 20090113
  2. EMCONCOR [Suspect]
     Indication: HYPERTENSION
     Dosage: 5 G
     Route: 048
     Dates: start: 20080101, end: 20090113
  3. CARDURA [Suspect]
     Indication: HYPERTENSION
     Dosage: 4 MG
     Route: 048
     Dates: start: 20080101, end: 20090113

REACTIONS (1)
  - CARDIAC FAILURE [None]
